FAERS Safety Report 15202962 (Version 1)
Quarter: 2018Q3

REPORT INFORMATION
  Report Type: Report from Study
  Country: US (occurrence: US)
  Receive Date: 20180726
  Receipt Date: 20180726
  Transmission Date: 20181010
  Serious: Yes (Other)
  Sender: FDA-Public Use
  Company Number: US-MYLANLABS-2018M1054644

PATIENT
  Age: 37 Year
  Sex: Female

DRUGS (1)
  1. MAGNESIUM CHLORIDE. [Suspect]
     Active Substance: MAGNESIUM CHLORIDE
     Indication: PRE-ECLAMPSIA
     Route: 042

REACTIONS (2)
  - Pulmonary oedema [Unknown]
  - Maternal exposure during pregnancy [Unknown]
